FAERS Safety Report 9295406 (Version 1)
Quarter: 2013Q2

REPORT INFORMATION
  Report Type: Spontaneous
  Country: JP (occurrence: JP)
  Receive Date: 20130517
  Receipt Date: 20130517
  Transmission Date: 20140414
  Serious: Yes (Other)
  Sender: FDA-Public Use
  Company Number: JP-BRISTOL-MYERS SQUIBB COMPANY-18896175

PATIENT
  Sex: 0

DRUGS (2)
  1. TAXOL INJ [Suspect]
     Route: 042
  2. CARBOPLATIN INJECTION [Suspect]

REACTIONS (1)
  - Convulsion [Unknown]
